FAERS Safety Report 6847309-X (Version None)
Quarter: 2010Q3

REPORT INFORMATION
  Report Type: 
  Country: None (occurrence: None)
  Receive Date: 20100716
  Receipt Date: 20100706
  Transmission Date: 20110219
  Serious: Yes (Disabling, Other)
  Sender: FDA-Public Use
  Company Number: CA-JNJFOC-20100701893

PATIENT
  Sex: Female
  Weight: 48.4 kg

DRUGS (8)
  1. REMICADE [Suspect]
     Indication: ANKYLOSING SPONDYLITIS
     Route: 042
  2. REMICADE [Suspect]
     Dosage: 100MG/VIAL.  240MG EVERY 8 WEEKS
     Route: 042
  3. CODEINE CONTIN [Concomitant]
     Indication: PRODUCT USED FOR UNKNOWN INDICATION
  4. CODEINE PHOSPHATE [Concomitant]
     Indication: PRODUCT USED FOR UNKNOWN INDICATION
     Dosage: 30 MG 1 OR 2 TABS HOUR OF SLEEP, WHEN EVER NECESSARY
  5. DICLOFENAC SODIUM [Concomitant]
     Indication: PRODUCT USED FOR UNKNOWN INDICATION
     Dosage: DICLOFENAC 5%
  6. IMIPRAMINE [Concomitant]
     Indication: PRODUCT USED FOR UNKNOWN INDICATION
     Dosage: IMIPRAMINE 10MG TWO AT HOUR OF SLEEP
  7. ETIDROCAL COMBO KIT [Concomitant]
     Indication: PRODUCT USED FOR UNKNOWN INDICATION
  8. DIPROSONE [Concomitant]
     Indication: PRODUCT USED FOR UNKNOWN INDICATION

REACTIONS (1)
  - TENDONITIS [None]
